FAERS Safety Report 5357453-4 (Version None)
Quarter: 2007Q2

REPORT INFORMATION
  Report Type: 
  Country: None (occurrence: None)
  Receive Date: 20070530
  Receipt Date: 20061013
  Transmission Date: 20071010
  Serious: Yes (Other)
  Sender: FDA-Public Use
  Company Number: US200511001097

PATIENT
  Age: 30 Year
  Sex: Male
  Weight: 83.9 kg

DRUGS (4)
  1. ZYPREXA [Suspect]
     Indication: BIPOLAR DISORDER
     Dosage: 5 MG, ORAL
     Route: 048
     Dates: start: 20030408
  2. ZYPREXA [Suspect]
     Dosage: 15 MG
     Dates: end: 20031028
  3. VALPROATE SODIUM [Concomitant]
  4. SERTRALINE [Concomitant]

REACTIONS (4)
  - BLOOD CHOLESTEROL ABNORMAL [None]
  - BLOOD TRIGLYCERIDES [None]
  - DIABETES MELLITUS NON-INSULIN-DEPENDENT [None]
  - WEIGHT INCREASED [None]
